FAERS Safety Report 4541633-1 (Version None)
Quarter: 2004Q4

REPORT INFORMATION
  Report Type: 
  Country: None (occurrence: None)
  Receive Date: 20041230
  Receipt Date: 20031112
  Transmission Date: 20050328
  Serious: Yes (Death, Hospitalization)
  Sender: FDA-Public Use
  Company Number: CA-ROCHE-351657

PATIENT
  Age: 78 Year
  Sex: Male
  Weight: 106 kg

DRUGS (9)
  1. CAPECITABINE [Suspect]
     Dosage: GIVEN AS TWICE DAILY INTERMITTENT TREATMENT CONSISTING OF 2 WEEKS TREATMENT FOLLOWED BY ONE WEEK WI+
     Route: 048
     Dates: start: 20030923, end: 20031104
  2. OXALIPLATIN [Suspect]
     Indication: COLON CANCER
     Dosage: GIVEN ON DAY ONE OF A THREE WEEK CYCLE
     Route: 042
     Dates: start: 20030923, end: 20031021
  3. VIOXX [Suspect]
     Indication: ARTHRITIS
     Route: 065
     Dates: end: 20031110
  4. COUMADIN [Concomitant]
     Indication: ATRIAL FIBRILLATION
     Dates: start: 19880615, end: 20031108
  5. VITAMINA E [Concomitant]
  6. VITAMIN C [Concomitant]
  7. MULTI-VITAMIN [Concomitant]
  8. VITAMIN B COMPLEX CAP [Concomitant]
     Dates: end: 20030923
  9. UNSPECIFIED DRUG [Concomitant]
     Indication: ANAEMIA
     Dates: start: 20030923

REACTIONS (17)
  - ATHEROSCLEROSIS [None]
  - BENIGN PROSTATIC HYPERPLASIA [None]
  - BLISTER [None]
  - COAGULOPATHY [None]
  - COMA [None]
  - CONFUSIONAL STATE [None]
  - DEHYDRATION [None]
  - DIARRHOEA [None]
  - GASTRITIS EROSIVE [None]
  - HAEMATEMESIS [None]
  - HYPOVOLAEMIC SHOCK [None]
  - MARKEDLY REDUCED DIETARY INTAKE [None]
  - NAUSEA [None]
  - RENAL CYST [None]
  - SOMNOLENCE [None]
  - UPPER GASTROINTESTINAL HAEMORRHAGE [None]
  - VOMITING [None]
